FAERS Safety Report 8257060 (Version 2)
Quarter: 2012Q4

REPORT INFORMATION
  Report Type: Spontaneous
  Country: US (occurrence: None)
  Receive Date: 20111031
  Receipt Date: 20121123
  Transmission Date: 20130627
  Serious: Yes (Other)
  Sender: FDA-Public Use
  Company Number: AEUSA201100288

PATIENT
  Age: 69 Year
  Sex: Male
  Weight: 74.84 kg

DRUGS (9)
  1. GAMMAKED [Suspect]
     Indication: IMMUNODEFICIENCY COMMON VARIABLE
     Dosage: X1; IV
     Route: 042
     Dates: start: 20111006, end: 20111006
  2. AMLODIPINE [Concomitant]
  3. OMEPRAZOLE [Concomitant]
  4. DOVONEX [Concomitant]
  5. METAMUCIL [Concomitant]
  6. IBUPROFEN [Concomitant]
  7. MULTIVITAMINS [Concomitant]
  8. GLUCOSAMINE/CHONDROITIN) [Concomitant]
  9. GAMUNEX-C [Suspect]
     Indication: COMMON VARIABLE IMMUNODEFICIENCY
     Route: 042
     Dates: start: 201112

REACTIONS (7)
  - Presyncope [None]
  - Back pain [None]
  - Musculoskeletal pain [None]
  - Feeling abnormal [None]
  - Lethargy [None]
  - Unresponsive to stimuli [None]
  - Musculoskeletal chest pain [None]
